FAERS Safety Report 10555428 (Version 1)
Quarter: 2014Q4

REPORT INFORMATION
  Report Type: Spontaneous
  Country: DE (occurrence: DE)
  Receive Date: 20141030
  Receipt Date: 20141030
  Transmission Date: 20150529
  Serious: Yes (Congenital Anomaly)
  Sender: FDA-Public Use
  Company Number: DE-TEVA-517923GER

PATIENT
  Age: 1 Day
  Sex: Male

DRUGS (3)
  1. VOMEX A [Concomitant]
     Active Substance: DIMENHYDRINATE
     Indication: HYPEREMESIS GRAVIDARUM
     Dosage: AS REQUIRED, IN SUMMARY BELOW 20 TABLETS UNKNOWN WHICH VOMEX A DRUG
     Route: 064
  2. CLOMIPRAMIN [Suspect]
     Active Substance: CLOMIPRAMINE
     Indication: ANXIETY DISORDER
     Dosage: 10 MILLIGRAM DAILY;
     Route: 064
  3. GAVISCON [Concomitant]
     Active Substance: ALUMINUM HYDROXIDE\MAGNESIUM CARBONATE
     Indication: DYSPEPSIA
     Route: 064

REACTIONS (2)
  - Polydactyly [Unknown]
  - Foetal exposure during pregnancy [Unknown]

NARRATIVE: CASE EVENT DATE: 20080214
